FAERS Safety Report 14410221 (Version 2)
Quarter: 2018Q1

REPORT INFORMATION
  Report Type: Report from Study
  Country: None (occurrence: TW)
  Receive Date: 20180119
  Receipt Date: 20180212
  Transmission Date: 20180509
  Serious: Yes (Hospitalization, Other)
  Sender: FDA-Public Use
  Company Number: TW-ABBVIE-18K-153-2224680-00

PATIENT
  Age: 71 Year
  Sex: Male

DRUGS (2)
  1. HUMIRA [Suspect]
     Active Substance: ADALIMUMAB
     Indication: RHEUMATOID ARTHRITIS
     Route: 058
     Dates: start: 20160202, end: 20180110
  2. HUMIRA [Suspect]
     Active Substance: ADALIMUMAB
     Route: 058
     Dates: start: 20180207

REACTIONS (9)
  - Nasopharyngitis [Recovering/Resolving]
  - Laceration [Recovering/Resolving]
  - Pyrexia [Not Recovered/Not Resolved]
  - Skin injury [Not Recovered/Not Resolved]
  - Blood urea increased [Recovering/Resolving]
  - Contusion [Recovering/Resolving]
  - Facial bones fracture [Not Recovered/Not Resolved]
  - Fall [Recovering/Resolving]
  - Rib fracture [Not Recovered/Not Resolved]

NARRATIVE: CASE EVENT DATE: 201801
